FAERS Safety Report 5256246-6 (Version None)
Quarter: 2007Q1

REPORT INFORMATION
  Report Type: 
  Country: None (occurrence: None)
  Receive Date: 20070302
  Receipt Date: 20070302
  Transmission Date: 20070707
  Serious: Yes (Life-Threatening, Hospitalization)
  Sender: FDA-Public Use
  Company Number: None

PATIENT
  Age: 89 Year
  Sex: Male
  Weight: 57.3 kg

DRUGS (10)
  1. COUMADIN [Suspect]
     Indication: ATRIAL FIBRILLATION
     Dosage: 1 MG ON EVEN DAYS, 2MG ODD DAYS DAILY PO
     Route: 048
  2. PLAVIX [Concomitant]
  3. ZANTAC [Concomitant]
  4. SINGULAIR [Concomitant]
  5. SEREVENT [Concomitant]
  6. LISINOPRIL [Concomitant]
  7. METOPROLOL SUCCINATE [Concomitant]
  8. ASPIRIN [Concomitant]
  9. PREDNISONE [Concomitant]
  10. ALBUTEROL [Concomitant]

REACTIONS (8)
  - ACTIVATED PARTIAL THROMBOPLASTIN TIME PROLONGED [None]
  - CHEST PAIN [None]
  - DIARRHOEA [None]
  - DYSPNOEA [None]
  - GASTROINTESTINAL HAEMORRHAGE [None]
  - INTERNATIONAL NORMALISED RATIO INCREASED [None]
  - PROTHROMBIN TIME PROLONGED [None]
  - PYREXIA [None]
